FAERS Safety Report 18819989 (Version 8)
Quarter: 2021Q3

REPORT INFORMATION
  Report Type: Report from Study
  Country: US (occurrence: US)
  Receive Date: 20210202
  Receipt Date: 20210831
  Transmission Date: 20211014
  Serious: Yes (Hospitalization, Other)
  Sender: FDA-Public Use
  Company Number: NVSC2021US016585

PATIENT
  Age: 35 Year
  Sex: Female

DRUGS (2)
  1. KESIMPTA [Suspect]
     Active Substance: OFATUMUMAB
     Indication: MULTIPLE SCLEROSIS
     Dosage: 20 MG (BENEATH SKIN, USUALLY VIA INJECTION)
     Route: 058
     Dates: start: 20210115
  2. DITROPAN [Concomitant]
     Active Substance: OXYBUTYNIN CHLORIDE
     Indication: PRODUCT USED FOR UNKNOWN INDICATION
     Dosage: UNK
     Route: 065

REACTIONS (15)
  - Hypoaesthesia [Unknown]
  - Memory impairment [Unknown]
  - Nausea [Recovered/Resolved]
  - Emotional disorder [Unknown]
  - Fatigue [Unknown]
  - Loss of consciousness [Recovered/Resolved]
  - Headache [Unknown]
  - Depression [Unknown]
  - Dizziness [Unknown]
  - Drug ineffective [Unknown]
  - Vomiting [Unknown]
  - Constipation [Unknown]
  - Nausea [Unknown]
  - Asthenia [Unknown]
  - Dehydration [Unknown]

NARRATIVE: CASE EVENT DATE: 20210115
